FAERS Safety Report 9513253 (Version 3)
Quarter: 2013Q4

REPORT INFORMATION
  Report Type: Spontaneous
  Country: JP (occurrence: JP)
  Receive Date: 20130910
  Receipt Date: 20131016
  Transmission Date: 20140711
  Serious: Yes (Hospitalization, Other)
  Sender: FDA-Public Use
  Company Number: JP-ELI_LILLY_AND_COMPANY-JP201308007207

PATIENT
  Age: 62 Year
  Sex: Male
  Weight: 68.3 kg

DRUGS (1)
  1. GEMZAR [Suspect]
     Indication: PANCREATIC CARCINOMA STAGE IV
     Dosage: 1000 MG/M2, OTHER
     Route: 042
     Dates: start: 20110405, end: 20111007

REACTIONS (5)
  - Compression fracture [Unknown]
  - Interstitial lung disease [Recovering/Resolving]
  - Metastases to liver [Unknown]
  - Ascites [Unknown]
  - General physical health deterioration [Unknown]
